FAERS Safety Report 7267378-5 (Version None)
Quarter: 2011Q1

REPORT INFORMATION
  Report Type: 
  Country: None (occurrence: None)
  Receive Date: 20110201
  Receipt Date: 20100817
  Transmission Date: 20110831
  Serious: No
  Sender: FDA-Public Use
  Company Number: A0876330A

PATIENT
  Age: 85 Year
  Sex: Male

DRUGS (12)
  1. GLUCOSAMINE [Concomitant]
  2. FORMOTEROL FUMARATE [Concomitant]
  3. ARIXTRA [Suspect]
     Dosage: 7.5MG PER DAY
     Route: 058
     Dates: start: 20090601
  4. MULTIPLE VITAMIN TABLETS [Concomitant]
  5. IMIPRAMINE [Concomitant]
  6. ASPIRIN [Concomitant]
  7. CHONDROITIN [Concomitant]
  8. SYNTHROID [Concomitant]
  9. VITAMIN B-12 [Concomitant]
  10. TESTOSTERONE [Concomitant]
  11. LOVAZA [Concomitant]
  12. TRAVATAN [Concomitant]

REACTIONS (1)
  - BLOOD BLISTER [None]
